FAERS Safety Report 25517465 (Version 1)
Quarter: 2025Q3

REPORT INFORMATION
  Report Type: Report from Study
  Country: US (occurrence: US)
  Receive Date: 20250704
  Receipt Date: 20250704
  Transmission Date: 20251021
  Serious: No
  Sender: SANDOZ
  Company Number: US-SANDOZ-SDZ2025US044820

PATIENT
  Age: 46 Year
  Sex: Male

DRUGS (2)
  1. HYRIMOZ [Suspect]
     Active Substance: ADALIMUMAB-ADAZ
     Indication: Crohn^s disease
     Dosage: 40 MG, Q2W, (OTHER: 0.4 ML),40MG/0.4ML SC EVERY 14 DAYS
     Route: 058
     Dates: start: 202405
  2. HYRIMOZ [Suspect]
     Active Substance: ADALIMUMAB-ADAZ
     Indication: Crohn^s disease
     Dosage: 40 MG, Q2W, (OTHER: 0.4 ML),40MG/0.4ML SC EVERY 14 DAYS
     Route: 058
     Dates: start: 202405

REACTIONS (3)
  - Incorrect dose administered [Unknown]
  - Drug delivery system issue [Unknown]
  - Device leakage [Unknown]

NARRATIVE: CASE EVENT DATE: 20250616
